FAERS Safety Report 4727564-2 (Version None)
Quarter: 2005Q3

REPORT INFORMATION
  Report Type: 
  Country: None (occurrence: None)
  Receive Date: 20050727
  Receipt Date: 20050727
  Transmission Date: 20060218
  Serious: Yes (Other)
  Sender: FDA-Public Use
  Company Number: None

PATIENT
  Age: 53 Year
  Sex: Female

DRUGS (2)
  1. DOXAZOSIN MESYL TAB 4MG TORPHARM APOTEK [Suspect]
     Indication: HYPERTENSION
     Dosage: ONE TAB DAILY
     Dates: start: 20040601
  2. CARDIZEM [Concomitant]

REACTIONS (2)
  - PAIN IN EXTREMITY [None]
  - THERAPEUTIC RESPONSE UNEXPECTED WITH DRUG SUBSTITUTION [None]
